FAERS Safety Report 12447789 (Version 1)
Quarter: 2016Q2

REPORT INFORMATION
  Report Type: Spontaneous
  Country: US (occurrence: None)
  Receive Date: 20160607
  Receipt Date: 20160607
  Transmission Date: 20160815
  Serious: No
  Sender: FDA-Public Use
  Company Number: None

PATIENT
  Sex: Male

DRUGS (1)
  1. TASIGNA [Suspect]
     Active Substance: NILOTINIB
     Indication: CHRONIC LEUKAEMIA
     Route: 048
     Dates: start: 20131213

REACTIONS (3)
  - Infection [None]
  - Inflammation [None]
  - Drug dose omission [None]

NARRATIVE: CASE EVENT DATE: 2016
